FAERS Safety Report 7163018-4 (Version None)
Quarter: 2010Q4

REPORT INFORMATION
  Report Type: 
  Country: None (occurrence: None)
  Receive Date: 20101215
  Receipt Date: 20100210
  Transmission Date: 20110411
  Serious: Yes (Other)
  Sender: FDA-Public Use
  Company Number: US-PFIZER INC-2010016199

PATIENT
  Sex: Female
  Weight: 63.492 kg

DRUGS (9)
  1. LYRICA [Suspect]
     Indication: FIBROMYALGIA
     Dosage: 75 MG, 3X/DAY
     Dates: end: 20090101
  2. NEURONTIN [Suspect]
     Indication: FIBROMYALGIA
  3. OXYCONTIN [Suspect]
     Indication: ARTHRITIS
     Dosage: 40 MG, 3X/DAY
     Route: 048
     Dates: end: 20090101
  4. PERCOCET [Suspect]
     Indication: ARTHRITIS
     Dosage: 10 MG, 1X/DAY
     Route: 048
     Dates: end: 20090101
  5. CYMBALTA [Concomitant]
     Indication: FIBROMYALGIA
     Dosage: UNK
  6. MELOXICAM [Concomitant]
     Indication: ARTHRITIS
     Dosage: UNK
  7. PROVIGIL [Concomitant]
     Indication: FATIGUE
     Dosage: UNK
  8. ARMODAFINIL [Concomitant]
     Indication: FATIGUE
     Dosage: UNK
  9. LEVOXYL [Concomitant]
     Indication: THYROID DISORDER
     Dosage: UNK

REACTIONS (11)
  - CARDIAC DISORDER [None]
  - CATARACT [None]
  - DIZZINESS [None]
  - DRUG INEFFECTIVE FOR UNAPPROVED INDICATION [None]
  - EYE PAIN [None]
  - FALL [None]
  - MIGRAINE [None]
  - UPPER LIMB FRACTURE [None]
  - VISION BLURRED [None]
  - VISUAL IMPAIRMENT [None]
  - WEIGHT INCREASED [None]
